FAERS Safety Report 6241234-3 (Version None)
Quarter: 2009Q2

REPORT INFORMATION
  Report Type: 
  Country: None (occurrence: None)
  Receive Date: 20090623
  Receipt Date: 20090609
  Transmission Date: 20091009
  Serious: Yes (Death, Hospitalization)
  Sender: FDA-Public Use
  Company Number: IT-MERCK-0906ITA00014

PATIENT
  Age: 61 Year
  Sex: Female

DRUGS (6)
  1. CASPOFUNGIN ACETATE [Suspect]
     Indication: PYREXIA
     Route: 051
     Dates: start: 20030101
  2. CASPOFUNGIN ACETATE [Suspect]
     Indication: INFECTION
     Route: 051
     Dates: start: 20030101
  3. TEICOPLANIN [Concomitant]
     Route: 065
  4. MEROPENEM [Concomitant]
     Route: 065
  5. AMPHOTERICIN B AND CHOLESTEROL AND DISTEAROYLPHOSPHATIDYLGLYCEROL AND [Concomitant]
     Route: 051
     Dates: start: 20030101
  6. GRANULOCYTE COLONY STIMULATING FACTOR (UNSPECIFIED) [Concomitant]
     Route: 065

REACTIONS (6)
  - B-CELL LYMPHOMA [None]
  - CACHEXIA [None]
  - FUSARIUM INFECTION [None]
  - HEPATIC FUNCTION ABNORMAL [None]
  - PLEURAL EFFUSION [None]
  - PYREXIA [None]
